FAERS Safety Report 15749595 (Version 1)
Quarter: 2018Q4

REPORT INFORMATION
  Report Type: Spontaneous
  Country: US (occurrence: US)
  Receive Date: 20181221
  Receipt Date: 20181221
  Transmission Date: 20190205
  Serious: No
  Sender: FDA-Public Use
  Company Number: US-AMGEN-USASP2018180557

PATIENT
  Sex: Male
  Weight: 137 kg

DRUGS (6)
  1. NPLATE [Suspect]
     Active Substance: ROMIPLOSTIM
     Indication: PRODUCT USED FOR UNKNOWN INDICATION
     Dosage: 126 MCG (1 MCG/KG), QWK
     Route: 065
     Dates: start: 201804
  2. NPLATE [Suspect]
     Active Substance: ROMIPLOSTIM
     Dosage: 250 MCG, UNK
     Route: 065
     Dates: start: 201805
  3. NPLATE [Suspect]
     Active Substance: ROMIPLOSTIM
     Dosage: 500 MCG, UNK
     Route: 065
     Dates: start: 201806, end: 201808
  4. NPLATE [Suspect]
     Active Substance: ROMIPLOSTIM
     Dosage: 3 MCG/KG, UNK
     Route: 065
     Dates: start: 201805
  5. NPLATE [Suspect]
     Active Substance: ROMIPLOSTIM
     Dosage: 530 MCG, UNK
     Route: 065
     Dates: start: 201811
  6. NPLATE [Suspect]
     Active Substance: ROMIPLOSTIM
     Dosage: 660 MCG, UNK
     Route: 065
     Dates: start: 201809, end: 201810

REACTIONS (1)
  - Platelet count abnormal [Unknown]

NARRATIVE: CASE EVENT DATE: 201809
